FAERS Safety Report 22080703 (Version 1)
Quarter: 2023Q1

REPORT INFORMATION
  Report Type: Spontaneous
  Country: US (occurrence: US)
  Receive Date: 20230309
  Receipt Date: 20230309
  Transmission Date: 20230418
  Serious: No
  Sender: FDA-Public Use
  Company Number: US-MYLANLABS-2023M1023582

PATIENT
  Sex: Female

DRUGS (2)
  1. ESTRADIOL TRANSDERMAL SYSTEM [Suspect]
     Active Substance: ESTRADIOL
     Indication: Menopause
     Dosage: 0.025 MILLIGRAM, QD (TWICE-WEEKLY)
     Route: 062
     Dates: start: 20230206
  2. PROGESTERONE [Concomitant]
     Active Substance: PROGESTERONE
     Dosage: 200 MILLIGRAM
     Route: 048

REACTIONS (4)
  - Abdominal pain upper [Not Recovered/Not Resolved]
  - Hot flush [Not Recovered/Not Resolved]
  - Night sweats [Not Recovered/Not Resolved]
  - Product quality issue [Unknown]
